FAERS Safety Report 5355759-6 (Version None)
Quarter: 2007Q2

REPORT INFORMATION
  Report Type: 
  Country: None (occurrence: None)
  Receive Date: 20070611
  Receipt Date: 20070611
  Transmission Date: 20071010
  Serious: Yes (Other)
  Sender: FDA-Public Use
  Company Number: None

PATIENT
  Age: 5 Year
  Sex: Male
  Weight: 19.0511 kg

DRUGS (1)
  1. POLYETHYLENE GLYCOL 3350 [Suspect]
     Indication: CONSTIPATION
     Dosage: 1/2 CAPFUL  1  PO
     Route: 048
     Dates: start: 20070516, end: 20070610

REACTIONS (2)
  - AGGRESSION [None]
  - HOMICIDAL IDEATION [None]
